FAERS Safety Report 7812621-4 (Version None)
Quarter: 2011Q3

REPORT INFORMATION
  Report Type: 
  Country: None (occurrence: None)
  Receive Date: 20110929
  Receipt Date: 20110915
  Transmission Date: 20111222
  Serious: Yes (Hospitalization)
  Sender: FDA-Public Use
  Company Number: 11-487

PATIENT
  Age: 68 Year
  Sex: Female

DRUGS (8)
  1. ATENOLOL [Concomitant]
  2. LEVOTHYROXINE SODIUM [Concomitant]
  3. RIVAROXABAN [Suspect]
     Indication: THROMBOSIS PROPHYLAXIS
     Dosage: 70MG-BID, ORAL
     Route: 048
     Dates: start: 20101001, end: 20101003
  4. MIRTAZAPINE [Concomitant]
  5. ACETAMINOPHEN AND CODEINE PHOSPHATE [Concomitant]
  6. ASPIRIN [Suspect]
     Indication: CARDIOVASCULAR DISORDER
     Dosage: 75 MG-QD, ORAL
     Route: 048
     Dates: end: 20101003
  7. RAMIPRIL [Concomitant]
  8. IBUPROFEN [Suspect]
     Indication: POSTOPERATIVE ANALGESIA
     Dosage: 200MG-3XDAY, ORAL
     Route: 048
     Dates: start: 20101003, end: 20101003

REACTIONS (3)
  - DRUG INTERACTION [None]
  - HYPOTENSION [None]
  - OESOPHAGITIS HAEMORRHAGIC [None]
